FAERS Safety Report 10880350 (Version 2)
Quarter: 2015Q2

REPORT INFORMATION
  Report Type: Spontaneous
  Country: JP (occurrence: JP)
  Receive Date: 20150302
  Receipt Date: 20150501
  Transmission Date: 20150821
  Serious: No
  Sender: FDA-Public Use
  Company Number: JP-MYLANLABS-2015M1005300

PATIENT

DRUGS (2)
  1. DOCETAXEL. [Suspect]
     Active Substance: DOCETAXEL
     Indication: ADENOCARCINOMA OF THE CERVIX
     Dosage: 100 MG, UNK
     Route: 041
     Dates: start: 20150204, end: 20150204
  2. CARBOPLATIN INJECTION 50 MG ^NK^ [Suspect]
     Active Substance: CARBOPLATIN
     Indication: ADENOCARCINOMA OF THE CERVIX
     Dosage: 500 MG, UNK
     Route: 041
     Dates: start: 20150204, end: 20150204

REACTIONS (5)
  - Oedema peripheral [Recovered/Resolved]
  - Flushing [Recovered/Resolved]
  - Product substitution issue [Unknown]
  - Face oedema [Recovered/Resolved]
  - Eczema [Recovered/Resolved]

NARRATIVE: CASE EVENT DATE: 20150204
